FAERS Safety Report 7063446-1 (Version None)
Quarter: 2010Q4

REPORT INFORMATION
  Report Type: 
  Country: None (occurrence: None)
  Receive Date: 20101026
  Receipt Date: 20100305
  Transmission Date: 20110411
  Serious: No
  Sender: FDA-Public Use
  Company Number: US-ABBOTT-10P-163-0631686-00

PATIENT
  Sex: Female

DRUGS (1)
  1. LUPRON DEPOT [Suspect]
     Indication: IN VITRO FERTILISATION
     Dosage: 0.5 ML DAILY X 14 DAYS 7TH DAY /  4MG/4ML
     Dates: start: 20100227

REACTIONS (1)
  - INFLUENZA LIKE ILLNESS [None]
